FAERS Safety Report 18270750 (Version 1)
Quarter: 2020Q3

REPORT INFORMATION
  Report Type: Report from Study
  Country: US (occurrence: US)
  Receive Date: 20200915
  Receipt Date: 20200915
  Transmission Date: 20201103
  Serious: Yes (Hospitalization)
  Sender: FDA-Public Use
  Company Number: US-JNJFOC-20200908738

PATIENT
  Sex: Female
  Weight: 63.56 kg

DRUGS (6)
  1. TRACLEER [Concomitant]
     Active Substance: BOSENTAN
  2. WARFARIN [Concomitant]
     Active Substance: WARFARIN
  3. FLOLAN [Concomitant]
     Active Substance: EPOPROSTENOL SODIUM
  4. ADCIRCA [Concomitant]
     Active Substance: TADALAFIL
  5. EPOPROSTENOL SODIUM. [Suspect]
     Active Substance: EPOPROSTENOL SODIUM
     Indication: PULMONARY ARTERIAL HYPERTENSION
     Route: 042
  6. COUMADIN [Concomitant]
     Active Substance: WARFARIN SODIUM

REACTIONS (1)
  - Vascular device infection [Unknown]
